FAERS Safety Report 16201036 (Version 1)
Quarter: 2019Q2

REPORT INFORMATION
  Report Type: Spontaneous
  Country: JP (occurrence: JP)
  Receive Date: 20190416
  Receipt Date: 20190416
  Transmission Date: 20190711
  Serious: Yes (Hospitalization, Other)
  Sender: FDA-Public Use
  Company Number: JP-SAKK-2019SA098101AA

PATIENT
  Age: 32 Year
  Sex: Male
  Weight: 64 kg

DRUGS (1)
  1. ALLEGRA [Suspect]
     Active Substance: FEXOFENADINE HYDROCHLORIDE
     Indication: SEASONAL ALLERGY
     Dosage: 1 DF, QD, NO EVENING DOSE TAKEN ON THE DAY OF ALCOHOL USE
     Route: 048
     Dates: start: 20190301, end: 20190318

REACTIONS (8)
  - Rhabdomyolysis [Recovered/Resolved]
  - Myalgia [Recovered/Resolved]
  - Myositis [Recovered/Resolved]
  - Malaise [Recovered/Resolved]
  - Chromaturia [Recovered/Resolved]
  - Pain in extremity [Recovered/Resolved]
  - Gait disturbance [Recovered/Resolved]
  - Urine output decreased [Recovered/Resolved]

NARRATIVE: CASE EVENT DATE: 201903
